FAERS Safety Report 8547016-1 (Version None)
Quarter: 2012Q3

REPORT INFORMATION
  Report Type: 
  Country: None (occurrence: None)
  Receive Date: 20120727
  Receipt Date: 20120308
  Transmission Date: 20120928
  Serious: No
  Sender: FDA-Public Use
  Company Number: US-ASTRAZENECA-2012SE16523

PATIENT
  Sex: Male

DRUGS (3)
  1. AMITRIPTYLINE HYDROCHLORIDE [Concomitant]
  2. SEROQUEL XR [Suspect]
     Route: 048
  3. CITALOPRAM HYDROBROMIDE [Concomitant]

REACTIONS (4)
  - ERECTILE DYSFUNCTION [None]
  - BLOOD GLUCOSE INCREASED [None]
  - BLOOD PRESSURE INCREASED [None]
  - FEELING ABNORMAL [None]
